FAERS Safety Report 25850614 (Version 1)
Quarter: 2025Q3

REPORT INFORMATION
  Report Type: Report from Study
  Country: US (occurrence: US)
  Receive Date: 20250926
  Receipt Date: 20250926
  Transmission Date: 20251021
  Serious: Yes (Other)
  Sender: ACADIA PHARMACEUTICALS
  Company Number: US-ACADIA PHARMACEUTICALS INC.-ACA-2025-PIM-010400

PATIENT
  Age: 86 Year
  Sex: Female

DRUGS (9)
  1. NUPLAZID [Suspect]
     Active Substance: PIMAVANSERIN TARTRATE
     Indication: Parkinson^s disease
     Dosage: 34 MILLIGRAM, QD
     Route: 048
     Dates: start: 20210326
  2. CARBIDOPA\LEVODOPA [Concomitant]
     Active Substance: CARBIDOPA\LEVODOPA
  3. GABAPENTIN [Concomitant]
     Active Substance: GABAPENTIN
  4. XYZAL [Concomitant]
     Active Substance: LEVOCETIRIZINE DIHYDROCHLORIDE
  5. SYNTHROID [Concomitant]
     Active Substance: LEVOTHYROXINE SODIUM
  6. LORAZEPAM [Concomitant]
     Active Substance: LORAZEPAM
  7. OMEPRAZOLE [Concomitant]
     Active Substance: OMEPRAZOLE
  8. QUETIAPINE [Concomitant]
     Active Substance: QUETIAPINE
  9. SIMVASTATIN [Concomitant]
     Active Substance: SIMVASTATIN

REACTIONS (2)
  - Depressed level of consciousness [Unknown]
  - Hallucination [Unknown]

NARRATIVE: CASE EVENT DATE: 20250901
